FAERS Safety Report 10143292 (Version 1)
Quarter: 2014Q2

REPORT INFORMATION
  Report Type: Spontaneous
  Country: US (occurrence: None)
  Receive Date: 20140429
  Receipt Date: 20140429
  Transmission Date: 20141212
  Serious: No
  Sender: FDA-Public Use
  Company Number: None

PATIENT
  Age: 56 Year
  Sex: Female
  Weight: 56.5 kg

DRUGS (1)
  1. PLAQUENIL [Suspect]
     Indication: ALOPECIA
     Route: 048
     Dates: start: 20121214, end: 20130114

REACTIONS (1)
  - Rash [None]
